FAERS Safety Report 8617653-4 (Version None)
Quarter: 2012Q3

REPORT INFORMATION
  Report Type: 
  Country: None (occurrence: None)
  Receive Date: 20120824
  Receipt Date: 20120117
  Transmission Date: 20120928
  Serious: No
  Sender: FDA-Public Use
  Company Number: US-ASTRAZENECA-2012SE03744

PATIENT
  Age: 84 Year
  Sex: Male

DRUGS (2)
  1. SYMBICORT [Suspect]
     Route: 055
  2. CIPROFLOXACIN HCL [Concomitant]

REACTIONS (1)
  - URINARY TRACT INFECTION [None]
